FAERS Safety Report 4400569-7 (Version None)
Quarter: 2004Q3

REPORT INFORMATION
  Report Type: 
  Country: None (occurrence: None)
  Receive Date: 20040719
  Receipt Date: 20040709
  Transmission Date: 20050211
  Serious: Yes (Hospitalization)
  Sender: FDA-Public Use
  Company Number: 200412685FR

PATIENT
  Age: 60 Year
  Sex: Female

DRUGS (2)
  1. ARAVA [Suspect]
     Indication: RHEUMATOID ARTHRITIS
     Route: 048
     Dates: start: 20010101
  2. CORTANCYL [Concomitant]
     Indication: RHEUMATOID ARTHRITIS
     Route: 048

REACTIONS (5)
  - DRUG TOLERANCE DECREASED [None]
  - LUNG NEOPLASM MALIGNANT [None]
  - OVERDOSE [None]
  - RHEUMATOID ARTHRITIS [None]
  - TUBERCULOSIS [None]
